FAERS Safety Report 14242092 (Version 1)
Quarter: 2017Q4

REPORT INFORMATION
  Report Type: Spontaneous
  Country: CH (occurrence: CH)
  Receive Date: 20171130
  Receipt Date: 20171130
  Transmission Date: 20180321
  Serious: No
  Sender: FDA-Public Use
  Company Number: None

PATIENT
  Age: 40 Year
  Weight: 52 kg

DRUGS (1)
  1. ENTYVIO [Suspect]
     Active Substance: VEDOLIZUMAB
     Indication: CROHN^S DISEASE
     Dosage: QUANTITY:300 INJECTION(S);OTHER FREQUENCY:8 WEEKS;?
     Route: 042
     Dates: start: 20170702, end: 20170903

REACTIONS (1)
  - Alopecia [None]

NARRATIVE: CASE EVENT DATE: 20170702
